FAERS Safety Report 4381782-4 (Version None)
Quarter: 2004Q2

REPORT INFORMATION
  Report Type: 
  Country: None (occurrence: None)
  Receive Date: 20040615
  Receipt Date: 20040607
  Transmission Date: 20050107
  Serious: Yes (Hospitalization)
  Sender: FDA-Public Use
  Company Number: STA-AE-04-MTX-160

PATIENT
  Age: 47 Year
  Sex: Male

DRUGS (7)
  1. METHOTREXATE [Suspect]
     Indication: RHEUMATOID ARTHRITIS
     Dosage: 20 MG 1X PER 1 WK, ORAL
     Route: 048
     Dates: start: 20001212, end: 20040201
  2. HUMIRA [Suspect]
     Indication: RHEUMATOID ARTHRITIS
     Dosage: 40 MG 1X PER 2 WK. SC
     Route: 058
     Dates: start: 20030709, end: 20040201
  3. MEDROL [Suspect]
     Indication: RHEUMATOID ARTHRITIS
     Dosage: 4 MG 1X PER DAY, ORAL
     Route: 048
     Dates: start: 20021211, end: 20040201
  4. LEXAPRO [Concomitant]
  5. LORTAB [Concomitant]
  6. SALSALATE (SALSALATE) [Concomitant]
  7. HYDROXYNE (HYDROXYNE) [Concomitant]

REACTIONS (1)
  - BURSITIS INFECTIVE [None]
